FAERS Safety Report 19674858 (Version 1)
Quarter: 2021Q3

REPORT INFORMATION
  Report Type: Spontaneous
  Country: TR (occurrence: TR)
  Receive Date: 20210809
  Receipt Date: 20210809
  Transmission Date: 20211014
  Serious: Yes (Hospitalization, Other)
  Sender: FDA-Public Use
  Company Number: TR-BAYER-2020-201050

PATIENT
  Age: 68 Year
  Sex: Female

DRUGS (5)
  1. MIRTAZAPINE. [Suspect]
     Active Substance: MIRTAZAPINE
     Dosage: 30 MG
  2. CIPROFLOXACIN. [Suspect]
     Active Substance: CIPROFLOXACIN
     Indication: CHOLECYSTITIS INFECTIVE
     Dosage: UNK
  3. ESCITALOPRAM [Suspect]
     Active Substance: ESCITALOPRAM OXALATE
     Dosage: 20 MG
  4. VEMURAFENIB. [Suspect]
     Active Substance: VEMURAFENIB
     Indication: MALIGNANT MELANOMA
     Dosage: UNK
  5. COBIMETINIB. [Suspect]
     Active Substance: COBIMETINIB
     Indication: MALIGNANT MELANOMA
     Dosage: UNK

REACTIONS (9)
  - Electrocardiogram QT prolonged [None]
  - Labelled drug-drug interaction medication error [None]
  - Blood creatinine increased [Not Recovered/Not Resolved]
  - Ventricular arrhythmia [None]
  - Syncope [None]
  - Ventricular extrasystoles [None]
  - Hypokalaemia [Not Recovered/Not Resolved]
  - Torsade de pointes [None]
  - Nephropathy toxic [None]
